FAERS Safety Report 9371065 (Version 6)
Quarter: 2013Q3

REPORT INFORMATION
  Report Type: Report from Study
  Country: US (occurrence: US)
  Receive Date: 20130627
  Receipt Date: 20130827
  Transmission Date: 20140515
  Serious: Yes (Hospitalization)
  Sender: FDA-Public Use
  Company Number: US-ROCHE-1240190

PATIENT
  Age: 56 Year
  Sex: Female

DRUGS (4)
  1. TRASTUZUMAB EMTANSINE [Suspect]
     Indication: BREAST CANCER METASTATIC
     Dosage: DATE OF LAST DOSE PRIOR TO ADVERSE EVENT : 11/JUN/2013
     Route: 042
     Dates: start: 20130521
  2. PERTUZUMAB [Suspect]
     Indication: BREAST CANCER METASTATIC
     Dosage: LOADING DOSE
     Route: 042
     Dates: start: 20130521
  3. PERTUZUMAB [Suspect]
     Dosage: DATE OF LAST DOSE PRIOR TO ADVERSE EVENT : 11/JUN/2013
     Route: 042
  4. PACLITAXEL [Suspect]
     Indication: BREAST CANCER METASTATIC
     Dosage: DATE OF LAST DOSE PRIOR TO ADVERSE EVENT: 14/MAY/2013
     Route: 042

REACTIONS (2)
  - Mental status changes [Not Recovered/Not Resolved]
  - Mental status changes [Recovered/Resolved]
